FAERS Safety Report 14921008 (Version 3)
Quarter: 2018Q3

REPORT INFORMATION
  Report Type: Report from Study
  Country: JP (occurrence: JP)
  Receive Date: 20180521
  Receipt Date: 20180710
  Transmission Date: 20181010
  Serious: Yes (Death, Other)
  Sender: FDA-Public Use
  Company Number: JP-009507513-1805JPN001648J

PATIENT
  Age: 70 Year
  Sex: Female
  Weight: 39 kg

DRUGS (3)
  1. KEYTRUDA [Suspect]
     Active Substance: PEMBROLIZUMAB
     Indication: TRANSITIONAL CELL CARCINOMA
     Dosage: 200 MG, Q3W
     Route: 041
     Dates: start: 20180312, end: 20180312
  2. OXYCONTIN [Concomitant]
     Active Substance: OXYCODONE HYDROCHLORIDE
     Indication: CANCER PAIN
     Dosage: 5 MG, BID
     Route: 048
  3. OXINORM [Concomitant]
     Indication: CANCER PAIN
     Dosage: 1 DF, PRN
     Route: 048

REACTIONS (1)
  - Autoimmune colitis [Fatal]

NARRATIVE: CASE EVENT DATE: 201805
